FAERS Safety Report 8772664 (Version 2)
Quarter: 2012Q4

REPORT INFORMATION
  Report Type: 
  Country: US (occurrence: US)
  Receive Date: 20120905
  Receipt Date: 20121011
  Transmission Date: 20130627
  Serious: Yes (Other)
  Sender: FDA-Public Use
  Company Number: US-PFIZER INC-2012215195

PATIENT
  Age: 57 Year
  Sex: Male
  Weight: 98.87 kg

DRUGS (4)
  1. ADVIL [Suspect]
     Indication: HEADACHE
     Dosage: 200 mg, as needed
     Route: 048
     Dates: start: 2012, end: 20120830
  2. ADVIL [Suspect]
  3. ADVIL [Suspect]
  4. ALEVE [Concomitant]
     Dosage: UNK

REACTIONS (4)
  - Wheezing [Not Recovered/Not Resolved]
  - Dyspnoea [Recovered/Resolved]
  - Swelling face [Not Recovered/Not Resolved]
  - Erythema [Recovered/Resolved]
